FAERS Safety Report 10557442 (Version 4)
Quarter: 2015Q3

REPORT INFORMATION
  Report Type: Spontaneous
  Country: US (occurrence: US)
  Receive Date: 20141031
  Receipt Date: 20150804
  Transmission Date: 20151125
  Serious: Yes (Life-Threatening, Hospitalization)
  Sender: FDA-Public Use
  Company Number: US-BAYER-2014-158805

PATIENT
  Age: 21 Year
  Sex: Female
  Weight: 54.42 kg

DRUGS (1)
  1. MIRENA [Suspect]
     Active Substance: LEVONORGESTREL
     Indication: CONTRACEPTION
     Dosage: 20 MCG/24HR, CONT
     Route: 015
     Dates: start: 20110328, end: 20121221

REACTIONS (13)
  - Device difficult to use [None]
  - General physical health deterioration [None]
  - Procedural pain [None]
  - Post procedural haematoma [None]
  - Complication of device removal [None]
  - Wound [None]
  - Dyspareunia [None]
  - Uterine perforation [None]
  - Device difficult to use [None]
  - Pain [None]
  - Infection [None]
  - Device breakage [None]
  - Injury [None]

NARRATIVE: CASE EVENT DATE: 201211
